FAERS Safety Report 8839563 (Version 2)
Quarter: 2012Q4

REPORT INFORMATION
  Report Type: 
  Country: CN (occurrence: CN)
  Receive Date: 20121015
  Receipt Date: 20121113
  Transmission Date: 20130627
  Serious: Yes (Hospitalization)
  Sender: FDA-Public Use
  Company Number: PHHY2012CN090536

PATIENT
  Age: 78 Year
  Sex: Female

DRUGS (2)
  1. TEGRETOL [Suspect]
     Indication: NEURALGIA
     Dosage: 1 DF, daily (1 tablet every morning)
     Dates: start: 20120911
  2. TEGRETOL [Suspect]
     Dosage: 2 DF, daily (1 tablet of Tegretol every morning and evening after hodpital discharge )

REACTIONS (7)
  - Dysphagia [Recovered/Resolved]
  - Mouth ulceration [Recovered/Resolved]
  - Skin reaction [Recovered/Resolved]
  - Generalised erythema [Recovered/Resolved]
  - Skin exfoliation [Recovered/Resolved]
  - Rash [Recovered/Resolved]
  - Pain [Recovered/Resolved]
